FAERS Safety Report 25434049 (Version 1)
Quarter: 2025Q2

REPORT INFORMATION
  Report Type: Spontaneous
  Country: ES (occurrence: ES)
  Receive Date: 20250613
  Receipt Date: 20250613
  Transmission Date: 20250717
  Serious: Yes (Death, Hospitalization)
  Sender: FRESENIUS KABI
  Company Number: None

PATIENT
  Age: 89 Year
  Sex: Male
  Weight: 69 kg

DRUGS (3)
  1. OXALIPLATIN [Suspect]
     Active Substance: OXALIPLATIN
     Indication: Gastric cancer stage IV
     Route: 042
     Dates: start: 20250129, end: 20250129
  2. KEYTRUDA [Suspect]
     Active Substance: PEMBROLIZUMAB
     Indication: Gastric cancer stage IV
     Route: 042
     Dates: start: 20250129, end: 20250129
  3. CAPECITABINE [Suspect]
     Active Substance: CAPECITABINE
     Indication: Gastric cancer stage IV
     Dosage: CAPECITABINA VO 2500 MG / 24 HOURS SINCE 29/01/2025 WITH POTENTIAL END DATE 07/02/2025?FOA: FILM-COA
     Route: 048
     Dates: start: 20250129, end: 20250207

REACTIONS (3)
  - Influenza [Fatal]
  - Acute respiratory failure [Fatal]
  - Metabolic acidosis [Fatal]

NARRATIVE: CASE EVENT DATE: 20250207
